FAERS Safety Report 13056981 (Version 1)
Quarter: 2016Q4

REPORT INFORMATION
  Report Type: Spontaneous
  Country: US (occurrence: US)
  Receive Date: 20161222
  Receipt Date: 20161222
  Transmission Date: 20170207
  Serious: Yes (Other)
  Sender: FDA-Public Use
  Company Number: US-LUNDBECK-DKLU2024208

PATIENT
  Sex: Male

DRUGS (1)
  1. NORTHERA [Suspect]
     Active Substance: DROXIDOPA
     Indication: PRODUCT USED FOR UNKNOWN INDICATION
     Dosage: SCHEDULE C
     Route: 065

REACTIONS (7)
  - Pain [Unknown]
  - Decreased appetite [Unknown]
  - Insomnia [Unknown]
  - Urinary tract disorder [Unknown]
  - Depression [Unknown]
  - Atrial fibrillation [Unknown]
  - Muscle spasms [Unknown]
